FAERS Safety Report 9498919 (Version 2)
Quarter: 2013Q3

REPORT INFORMATION
  Report Type: Report from Study
  Country: CA (occurrence: CA)
  Receive Date: 20130904
  Receipt Date: 20130904
  Transmission Date: 20140515
  Serious: Yes (Hospitalization)
  Sender: FDA-Public Use
  Company Number: CA-INCYTE CORPORATION-2012IN002611

PATIENT
  Age: 70 Year
  Sex: Female

DRUGS (7)
  1. JAKAVI [Suspect]
     Indication: MYELOFIBROSIS
     Dosage: 20 MG, BID
     Route: 048
     Dates: start: 20120126
  2. JAKAVI [Suspect]
     Dosage: 15 MG, BID
     Route: 048
     Dates: start: 201203
  3. JAKAVI [Suspect]
     Dosage: 10 MG, BID
     Route: 048
     Dates: start: 20120822, end: 20130112
  4. JAKAVI [Suspect]
     Dosage: UNK, UNKNOWN
     Route: 048
     Dates: start: 20130130
  5. JAKAVI [Suspect]
     Dosage: UNK, UKN, UNK
  6. PREDNISONE [Concomitant]
  7. BUSULFAN [Concomitant]

REACTIONS (16)
  - Pneumonia [Unknown]
  - Gout [Unknown]
  - Abdominal pain upper [Unknown]
  - Local swelling [Recovered/Resolved]
  - Hypophagia [Unknown]
  - Hot flush [Unknown]
  - Malaise [Unknown]
  - Nausea [Unknown]
  - Tooth disorder [Unknown]
  - Epistaxis [Unknown]
  - Splenomegaly [Unknown]
  - Pruritus [Unknown]
  - Drug ineffective [Unknown]
  - Blood count abnormal [Unknown]
  - Red blood cell count decreased [Unknown]
  - Platelet count decreased [None]
